FAERS Safety Report 16410170 (Version 1)
Quarter: 2019Q3

REPORT INFORMATION
  Report Type: Spontaneous
  Country: US (occurrence: US)
  Receive Date: 20190607
  Receipt Date: 20190607
  Transmission Date: 20191004
  Serious: Yes (Death)
  Sender: FDA-Public Use
  Company Number: None

PATIENT
  Age: 59 Year
  Sex: Male
  Weight: 91.7 kg

DRUGS (10)
  1. ATORVASTATIN 80MG DAILY [Concomitant]
  2. EMPAGLIFLOZIN 10MG  DAILY [Concomitant]
  3. XARELTO [Suspect]
     Active Substance: RIVAROXABAN
     Indication: CEREBROVASCULAR ACCIDENT
     Route: 048
     Dates: start: 20180105, end: 20190217
  4. LISINOPRIL 10MG DAILY [Concomitant]
  5. BUPROPION 100MG BID [Concomitant]
  6. LYRICA [Concomitant]
     Active Substance: PREGABALIN
  7. XARELTO [Suspect]
     Active Substance: RIVAROXABAN
     Indication: DEEP VEIN THROMBOSIS
     Route: 048
     Dates: start: 20180105, end: 20190217
  8. GABAPENTIN 300MG BID [Concomitant]
  9. NOVOLIN 70/30 BID [Concomitant]
  10. SITAGLIPTIN 100MG DAILY [Concomitant]

REACTIONS (7)
  - Cerebral haematoma [None]
  - Treatment noncompliance [None]
  - Shock [None]
  - Anticoagulation drug level below therapeutic [None]
  - Pneumonia aspiration [None]
  - Pneumonia [None]
  - Hypertensive emergency [None]

NARRATIVE: CASE EVENT DATE: 20190217
